FAERS Safety Report 6394923-4 (Version None)
Quarter: 2009Q4

REPORT INFORMATION
  Report Type: 
  Country: None (occurrence: None)
  Receive Date: 20091009
  Receipt Date: 20091005
  Transmission Date: 20100525
  Serious: Yes (Hospitalization)
  Sender: FDA-Public Use
  Company Number: US-BRISTOL-MYERS SQUIBB COMPANY-14805709

PATIENT
  Age: 63 Year
  Sex: Female
  Weight: 53 kg

DRUGS (1)
  1. ERBITUX [Suspect]
     Indication: SQUAMOUS CELL CARCINOMA OF THE CERVIX
     Dosage: 2ND COURSE INITIATED ON 20-JUL-2009 AND ENDED ON 10-AUG-2009.TOTAL DOSE ADMINIST THIS COURSE-1592MG
     Route: 042
     Dates: start: 20090620, end: 20090810

REACTIONS (3)
  - ABDOMINAL PAIN [None]
  - BACK PAIN [None]
  - HAEMOGLOBIN DECREASED [None]
